FAERS Safety Report 4934199-5 (Version None)
Quarter: 2006Q1

REPORT INFORMATION
  Report Type: 
  Country: None (occurrence: None)
  Receive Date: 20060303
  Receipt Date: 20060223
  Transmission Date: 20060701
  Serious: Yes (Disabling, Other)
  Sender: FDA-Public Use
  Company Number: 2006028318

PATIENT
  Age: 52 Year
  Sex: Female

DRUGS (21)
  1. XANAX [Suspect]
     Indication: ANXIETY
  2. XANAX [Suspect]
     Indication: DEPRESSION
  3. XANAX [Suspect]
     Indication: EMOTIONAL DISORDER
  4. XANAX [Suspect]
     Indication: HYPERTENSION
  5. XANAX [Suspect]
     Indication: STRESS
  6. ZOLOFT [Suspect]
     Indication: ANXIETY
  7. ZOLOFT [Suspect]
     Indication: DEPRESSION
  8. ZOLOFT [Suspect]
     Indication: EMOTIONAL DISORDER
  9. ZOLOFT [Suspect]
     Indication: HYPERTENSION
  10. ZOLOFT [Suspect]
     Indication: STRESS
  11. DETROL LA [Suspect]
     Indication: ILL-DEFINED DISORDER
     Dates: start: 20051101
  12. CYANOCOBALAMIN [Suspect]
     Indication: ASTHENIA
     Dosage: SUBLINGUAL
     Route: 060
  13. ALL OTHER THERAPEUTIC PRODUCTS (ALL OTHER THERAPEUTIC PRODUCTS) [Suspect]
     Indication: ILL-DEFINED DISORDER
  14. NEXIUM [Concomitant]
  15. TRAMADOL HCL [Concomitant]
  16. HYDROCODONE BITARTRATE [Concomitant]
  17. ALL OTHER THERAPEUTIC PRODUCTS (ALL OTHER THERAPEUTIC PRODUCTS) [Concomitant]
  18. INDERAL [Concomitant]
  19. DIPHENHYDRAMINE HCL [Concomitant]
  20. DICYCLOMINE (DICYCLOVERINE) [Concomitant]
  21. LACTINEX (LACTOBACILLUS ACIDOPHILUS, LACTOBACILLUS BULGARICUS) [Concomitant]

REACTIONS (17)
  - ALOPECIA [None]
  - ASTHENIA [None]
  - BLADDER PAIN [None]
  - CYSTITIS INTERSTITIAL [None]
  - DEPRESSION [None]
  - DRUG INEFFECTIVE [None]
  - DRUG INTERACTION [None]
  - GASTRITIS [None]
  - GASTROINTESTINAL ULCER HAEMORRHAGE [None]
  - HYPERTENSION [None]
  - MITRAL VALVE REPLACEMENT [None]
  - NERVOUSNESS [None]
  - OOPHORECTOMY [None]
  - PAIN IN EXTREMITY [None]
  - PEPTIC ULCER HAEMORRHAGE [None]
  - RENAL PAIN [None]
  - SMALL INTESTINAL HAEMORRHAGE [None]
